FAERS Safety Report 13553187 (Version 1)
Quarter: 2017Q2

REPORT INFORMATION
  Report Type: Spontaneous
  Country: US (occurrence: US)
  Receive Date: 20170516
  Receipt Date: 20170516
  Transmission Date: 20170830
  Serious: Yes (Life-Threatening)
  Sender: FDA-Public Use
  Company Number: None

PATIENT
  Age: 47 Year
  Sex: Female
  Weight: 69.75 kg

DRUGS (11)
  1. GEODON [Suspect]
     Active Substance: ZIPRASIDONE HYDROCHLORIDE\ZIPRASIDONE MESYLATE
     Indication: NIGHTMARE
     Dosage: ?          QUANTITY:1 CAPSULE(S);?
     Route: 048
  2. VICODIN [Concomitant]
     Active Substance: ACETAMINOPHEN\HYDROCODONE BITARTRATE
  3. ATENOLOL. [Concomitant]
     Active Substance: ATENOLOL
  4. ADVIL [Concomitant]
     Active Substance: IBUPROFEN
  5. BENADRYL [Concomitant]
     Active Substance: DIPHENHYDRAMINE HYDROCHLORIDE
  6. TRAMADOL. [Concomitant]
     Active Substance: TRAMADOL
  7. VENLAFAXINE [Concomitant]
     Active Substance: VENLAFAXINE HYDROCHLORIDE
  8. CLONAZEPAM. [Concomitant]
     Active Substance: CLONAZEPAM
  9. CALCIUM [Concomitant]
     Active Substance: CALCIUM
  10. C [Concomitant]
  11. GEODON [Suspect]
     Active Substance: ZIPRASIDONE HYDROCHLORIDE\ZIPRASIDONE MESYLATE
     Indication: TREMOR
     Dosage: ?          QUANTITY:1 CAPSULE(S);?
     Route: 048

REACTIONS (15)
  - Weight decreased [None]
  - Akathisia [None]
  - Extrapyramidal disorder [None]
  - Mastication disorder [None]
  - Cachexia [None]
  - Tremor [None]
  - Dysphagia [None]
  - Balance disorder [None]
  - Urinary hesitation [None]
  - Amnesia [None]
  - Dyskinesia [None]
  - Psychotic disorder [None]
  - Drooling [None]
  - Speech disorder [None]
  - Asthenia [None]

NARRATIVE: CASE EVENT DATE: 20120115
